FAERS Safety Report 8464299-7 (Version None)
Quarter: 2012Q2

REPORT INFORMATION
  Report Type: 
  Country: None (occurrence: None)
  Receive Date: 20120625
  Receipt Date: 20111130
  Transmission Date: 20120825
  Serious: Yes (Life-Threatening, Hospitalization, Disabling, Other)
  Sender: FDA-Public Use
  Company Number: CZ-TEVA-343951ISR

PATIENT
  Sex: Male

DRUGS (1)
  1. CISPLATIN [Suspect]
     Indication: CHEMOTHERAPY
     Dosage: 10 MILLIGRAM;
     Route: 041
     Dates: start: 20111107

REACTIONS (3)
  - PANCYTOPENIA [None]
  - SEPSIS [None]
  - COLITIS [None]
